FAERS Safety Report 21881587 (Version 2)
Quarter: 2023Q1

REPORT INFORMATION
  Report Type: Spontaneous
  Country: US (occurrence: US)
  Receive Date: 20230119
  Receipt Date: 20230220
  Transmission Date: 20230418
  Serious: No
  Sender: FDA-Public Use
  Company Number: US-BIOVITRUM-2023US00638

PATIENT
  Age: 15 Year
  Sex: Female

DRUGS (6)
  1. KINERET [Suspect]
     Active Substance: ANAKINRA
     Indication: Juvenile idiopathic arthritis
     Dates: start: 20220104
  2. KINERET [Suspect]
     Active Substance: ANAKINRA
     Indication: Still^s disease
     Dates: start: 20230118
  3. UNSPECIFIED INGREDIENT [Concomitant]
     Active Substance: UNSPECIFIED INGREDIENT
  4. TYLENOL [Concomitant]
     Active Substance: ACETAMINOPHEN
  5. VITAMINS [Concomitant]
     Active Substance: VITAMINS
  6. NAPROXEN [Concomitant]
     Active Substance: NAPROXEN

REACTIONS (4)
  - Arthralgia [Unknown]
  - Heart rate abnormal [Unknown]
  - Anaemia [Unknown]
  - Off label use [Unknown]

NARRATIVE: CASE EVENT DATE: 20220104
